FAERS Safety Report 21598612 (Version 1)
Quarter: 2022Q4

REPORT INFORMATION
  Report Type: Spontaneous
  Country: BR (occurrence: BR)
  Receive Date: 20221115
  Receipt Date: 20221115
  Transmission Date: 20230113
  Serious: Yes (Death, Other)
  Sender: FDA-Public Use
  Company Number: BR-GSK-BR2022GSK163116

PATIENT

DRUGS (46)
  1. LAMIVUDINE [Suspect]
     Active Substance: LAMIVUDINE
     Indication: HIV infection
     Dosage: UNK
     Dates: start: 201901
  2. LAMIVUDINE [Suspect]
     Active Substance: LAMIVUDINE
     Indication: Acquired immunodeficiency syndrome
     Dosage: UNK
  3. LAMIVUDINE [Suspect]
     Active Substance: LAMIVUDINE
     Dosage: UNK
  4. ABACAVIR [Suspect]
     Active Substance: ABACAVIR
     Indication: HIV infection
     Dosage: UNK
     Dates: start: 201901
  5. ABACAVIR [Suspect]
     Active Substance: ABACAVIR
     Indication: Acquired immunodeficiency syndrome
  6. DOLUTEGRAVIR [Suspect]
     Active Substance: DOLUTEGRAVIR
     Indication: HIV infection
     Dosage: UNK
     Dates: start: 2019
  7. DOLUTEGRAVIR [Suspect]
     Active Substance: DOLUTEGRAVIR
     Indication: Acquired immunodeficiency syndrome
  8. MARAVIROC [Suspect]
     Active Substance: MARAVIROC
     Indication: HIV infection
     Dosage: UNK
     Dates: start: 2019
  9. MARAVIROC [Suspect]
     Active Substance: MARAVIROC
     Indication: Acquired immunodeficiency syndrome
  10. DARUNAVIR [Suspect]
     Active Substance: DARUNAVIR
     Indication: HIV infection
     Dosage: UNK
     Dates: start: 201901
  11. DARUNAVIR [Suspect]
     Active Substance: DARUNAVIR
     Indication: Acquired immunodeficiency syndrome
  12. RITONAVIR [Suspect]
     Active Substance: RITONAVIR
     Indication: HIV infection
     Dosage: UNK
     Dates: start: 201901
  13. RITONAVIR [Suspect]
     Active Substance: RITONAVIR
     Indication: Acquired immunodeficiency syndrome
  14. AMPHOTERICIN B [Concomitant]
     Active Substance: AMPHOTERICIN B
     Indication: Prophylaxis
     Dosage: UNK
     Dates: start: 201901
  15. AMPHOTERICIN B [Concomitant]
     Active Substance: AMPHOTERICIN B
     Indication: Visceral leishmaniasis
     Dosage: 3-5 MG/KG/DAY
     Dates: start: 2019
  16. AMPHOTERICIN B [Concomitant]
     Active Substance: AMPHOTERICIN B
     Dosage: 3 MG/KG/DAY EVERY 7 DAYS
     Dates: start: 2019
  17. FLUCONAZOLE [Concomitant]
     Active Substance: FLUCONAZOLE
     Indication: Dysphagia
     Dosage: 400 MG, QD
     Route: 042
     Dates: start: 2019
  18. FLUCONAZOLE [Concomitant]
     Active Substance: FLUCONAZOLE
     Indication: Oral mucosal discolouration
  19. FLUCONAZOLE [Concomitant]
     Active Substance: FLUCONAZOLE
     Indication: Oral mucosal erythema
  20. FLUCONAZOLE [Concomitant]
     Active Substance: FLUCONAZOLE
     Indication: Oesophageal mucosa erythema
  21. FLUCONAZOLE [Concomitant]
     Active Substance: FLUCONAZOLE
     Indication: Oropharyngeal plaque
  22. NYSTATIN [Concomitant]
     Active Substance: NYSTATIN
     Indication: Dysphagia
     Dosage: UNK
     Route: 048
     Dates: start: 2019
  23. NYSTATIN [Concomitant]
     Active Substance: NYSTATIN
     Indication: Oral mucosal discolouration
  24. NYSTATIN [Concomitant]
     Active Substance: NYSTATIN
     Indication: Oral mucosal erythema
  25. NYSTATIN [Concomitant]
     Active Substance: NYSTATIN
     Indication: Oesophageal mucosa erythema
  26. NYSTATIN [Concomitant]
     Active Substance: NYSTATIN
     Indication: Oropharyngeal plaque
  27. AZITHROMYCIN [Concomitant]
     Active Substance: AZITHROMYCIN
     Indication: Dysphagia
     Dosage: UNK
     Dates: start: 2019
  28. AZITHROMYCIN [Concomitant]
     Active Substance: AZITHROMYCIN
     Indication: Oral mucosal discolouration
  29. AZITHROMYCIN [Concomitant]
     Active Substance: AZITHROMYCIN
     Indication: Oral mucosal erythema
  30. AZITHROMYCIN [Concomitant]
     Active Substance: AZITHROMYCIN
     Indication: Oesophageal mucosa erythema
  31. AZITHROMYCIN [Concomitant]
     Active Substance: AZITHROMYCIN
     Indication: Oropharyngeal plaque
  32. SACCHAROMYCES CEREVISIAE [Concomitant]
     Active Substance: SACCHAROMYCES CEREVISIAE
     Indication: Dysphagia
     Dosage: UNK (PROBIOTIC)
     Dates: start: 2019
  33. SACCHAROMYCES CEREVISIAE [Concomitant]
     Active Substance: SACCHAROMYCES CEREVISIAE
     Indication: Oral mucosal discolouration
  34. SACCHAROMYCES CEREVISIAE [Concomitant]
     Active Substance: SACCHAROMYCES CEREVISIAE
     Indication: Oral mucosal erythema
  35. SACCHAROMYCES CEREVISIAE [Concomitant]
     Active Substance: SACCHAROMYCES CEREVISIAE
     Indication: Oesophageal mucosa erythema
  36. SACCHAROMYCES CEREVISIAE [Concomitant]
     Active Substance: SACCHAROMYCES CEREVISIAE
     Indication: Oropharyngeal plaque
  37. RACECADOTRIL [Concomitant]
     Active Substance: RACECADOTRIL
     Indication: Dysphagia
     Dosage: UNK
     Dates: start: 2019
  38. RACECADOTRIL [Concomitant]
     Active Substance: RACECADOTRIL
     Indication: Oral mucosal discolouration
  39. RACECADOTRIL [Concomitant]
     Active Substance: RACECADOTRIL
     Indication: Oral mucosal erythema
  40. RACECADOTRIL [Concomitant]
     Active Substance: RACECADOTRIL
     Indication: Oesophageal mucosa erythema
  41. RACECADOTRIL [Concomitant]
     Active Substance: RACECADOTRIL
     Indication: Oropharyngeal plaque
  42. LOPERAMIDE [Concomitant]
     Active Substance: LOPERAMIDE
     Indication: Dysphagia
     Dosage: UNK
     Dates: start: 2019
  43. LOPERAMIDE [Concomitant]
     Active Substance: LOPERAMIDE
     Indication: Oral mucosal discolouration
  44. LOPERAMIDE [Concomitant]
     Active Substance: LOPERAMIDE
     Indication: Oral mucosal erythema
  45. LOPERAMIDE [Concomitant]
     Active Substance: LOPERAMIDE
     Indication: Oesophageal mucosa erythema
  46. LOPERAMIDE [Concomitant]
     Active Substance: LOPERAMIDE
     Indication: Oropharyngeal plaque

REACTIONS (7)
  - General physical health deterioration [Fatal]
  - Immunosuppression [Unknown]
  - Cachexia [Unknown]
  - Viral mutation identified [Unknown]
  - Condition aggravated [Unknown]
  - Dehydration [Unknown]
  - Treatment noncompliance [Unknown]
